FAERS Safety Report 14250435 (Version 1)
Quarter: 2017Q4

REPORT INFORMATION
  Report Type: Spontaneous
  Country: US (occurrence: US)
  Receive Date: 20171205
  Receipt Date: 20171205
  Transmission Date: 20180321
  Serious: Yes (Other)
  Sender: FDA-Public Use
  Company Number: None

PATIENT
  Age: 72 Year
  Sex: Male
  Weight: 61.2 kg

DRUGS (1)
  1. CIPROFLOXACIN. [Suspect]
     Active Substance: CIPROFLOXACIN
     Indication: CYSTITIS
     Dosage: ?          QUANTITY:20 TABLET(S);?
     Route: 048
     Dates: start: 20171130, end: 20171203

REACTIONS (6)
  - Cough [None]
  - Diarrhoea [None]
  - Arthralgia [None]
  - Lower respiratory tract infection [None]
  - Secretion discharge [None]
  - Headache [None]

NARRATIVE: CASE EVENT DATE: 20171129
